FAERS Safety Report 25052854 (Version 2)
Quarter: 2025Q1

REPORT INFORMATION
  Report Type: Spontaneous
  Country: US (occurrence: US)
  Receive Date: 20250307
  Receipt Date: 20250312
  Transmission Date: 20250408
  Serious: No
  Sender: SANOFI AVENTIS
  Company Number: US-SA-2025SA061129

PATIENT
  Age: 37 Year
  Sex: Female

DRUGS (4)
  1. CABLIVI [Suspect]
     Active Substance: CAPLACIZUMAB-YHDP
     Indication: Vasculitis necrotising
     Dosage: 11 MG, QD
     Route: 058
     Dates: start: 20250217
  2. CABLIVI [Suspect]
     Active Substance: CAPLACIZUMAB-YHDP
     Indication: Vasculitis necrotising
     Dosage: 11 MG, QD
     Route: 058
     Dates: start: 20250217
  3. CABLIVI [Suspect]
     Active Substance: CAPLACIZUMAB-YHDP
     Indication: Vasculitis necrotising
     Dosage: 11 MG, QD
     Route: 058
     Dates: start: 20250217
  4. CABLIVI [Suspect]
     Active Substance: CAPLACIZUMAB-YHDP
     Indication: Vasculitis necrotising
     Dosage: 11 MG, QD
     Route: 058
     Dates: start: 20250217

REACTIONS (10)
  - Feeling abnormal [Unknown]
  - Pain [Unknown]
  - Oropharyngeal pain [Unknown]
  - Weight increased [Unknown]
  - Joint swelling [Unknown]
  - Peripheral swelling [Unknown]
  - ADAMTS13 activity abnormal [Unknown]
  - Dyspnoea [Unknown]
  - Asthenia [Unknown]
  - Product use in unapproved indication [Unknown]

NARRATIVE: CASE EVENT DATE: 20250201
